FAERS Safety Report 4394916-2 (Version None)
Quarter: 2004Q3

REPORT INFORMATION
  Report Type: 
  Country: None (occurrence: None)
  Receive Date: 20040712
  Receipt Date: 20040708
  Transmission Date: 20050211
  Serious: Yes (Other)
  Sender: FDA-Public Use
  Company Number: US-GLAXOSMITHKLINE-A0517442A

PATIENT
  Age: 51 Year
  Sex: Male

DRUGS (4)
  1. WELLBUTRIN [Suspect]
     Indication: DEPRESSION
     Dosage: 200MG TWICE PER DAY
     Route: 048
     Dates: start: 20021001
  2. RITALIN [Concomitant]
  3. CLARITIN [Concomitant]
  4. EXCEDRIN (MIGRAINE) [Concomitant]

REACTIONS (7)
  - ANGER [None]
  - CONVULSION [None]
  - ERECTILE DYSFUNCTION [None]
  - FATIGUE [None]
  - MANIA [None]
  - MOOD ALTERED [None]
  - TENSION [None]
